FAERS Safety Report 5624952-7 (Version None)
Quarter: 2008Q1

REPORT INFORMATION
  Report Type: 
  Country: None (occurrence: None)
  Receive Date: 20080213
  Receipt Date: 20080130
  Transmission Date: 20080703
  Serious: Yes (Death, Other)
  Sender: FDA-Public Use
  Company Number: GB-RANBAXY-2008RR-12853

PATIENT

DRUGS (6)
  1. AMLODIPINE [Suspect]
     Route: 048
  2. ASPIRIN [Suspect]
  3. ACETAMINOPHEN [Suspect]
  4. SOTALOL [Suspect]
     Route: 048
  5. DEXTROSE [Concomitant]
     Dosage: 35 G, UNK
     Route: 042
  6. INSULIN [Concomitant]

REACTIONS (3)
  - DEATH [None]
  - DRUG TOXICITY [None]
  - HYPOTENSION [None]
